FAERS Safety Report 13759177 (Version 2)
Quarter: 2017Q4

REPORT INFORMATION
  Report Type: Report from Study
  Country: CA (occurrence: CA)
  Receive Date: 20170717
  Receipt Date: 20171012
  Transmission Date: 20180320
  Serious: Yes (Other)
  Sender: FDA-Public Use
  Company Number: CA-AMGEN-CANSL2017106197

PATIENT
  Age: 67 Year
  Sex: Female
  Weight: 45.35 kg

DRUGS (2)
  1. CALCIUM [Concomitant]
     Active Substance: CALCIUM
     Dosage: UNK
  2. PROLIA [Suspect]
     Active Substance: DENOSUMAB
     Indication: OSTEOPOROSIS POSTMENOPAUSAL
     Dosage: 60 MG,
     Route: 058
     Dates: start: 20170208

REACTIONS (6)
  - Stress [Unknown]
  - Myalgia [Recovered/Resolved]
  - Palpitations [Recovered/Resolved]
  - Fatigue [Unknown]
  - Chest pain [Not Recovered/Not Resolved]
  - Nausea [Recovered/Resolved]

NARRATIVE: CASE EVENT DATE: 2017
